FAERS Safety Report 19325475 (Version 1)
Quarter: 2021Q2

REPORT INFORMATION
  Report Type: Spontaneous
  Country: CN (occurrence: CN)
  Receive Date: 20210528
  Receipt Date: 20210528
  Transmission Date: 20210717
  Serious: Yes (Other)
  Sender: FDA-Public Use
  Company Number: NVSC2021CN115054

PATIENT
  Age: 48 Year
  Sex: Female

DRUGS (1)
  1. LOTENSIN [Suspect]
     Active Substance: BENAZEPRIL HYDROCHLORIDE
     Indication: CARDIAC FAILURE
     Dosage: UNK
     Route: 065

REACTIONS (1)
  - Cholestasis [Unknown]
